FAERS Safety Report 20252342 (Version 2)
Quarter: 2024Q1

REPORT INFORMATION
  Report Type: Report from Study
  Country: US (occurrence: US)
  Receive Date: 20211229
  Receipt Date: 20240207
  Transmission Date: 20240409
  Serious: Yes (Hospitalization)
  Sender: FDA-Public Use
  Company Number: US-ABBVIE-21K-163-4207404-00

PATIENT
  Age: 17 Year
  Sex: Male

DRUGS (18)
  1. HUMIRA [Suspect]
     Active Substance: ADALIMUMAB
     Indication: Crohn^s disease
     Route: 058
     Dates: start: 201309, end: 201403
  2. METHOTREXATE [Suspect]
     Active Substance: METHOTREXATE
     Indication: Crohn^s disease
     Route: 048
     Dates: start: 20160220, end: 20190327
  3. CHOLECALCIFEROL [Concomitant]
     Active Substance: CHOLECALCIFEROL
     Indication: Supplementation therapy
     Route: 048
     Dates: start: 20180702
  4. KATE FARMS PEPTIDE [Concomitant]
     Indication: Nutritional supplementation
     Route: 048
     Dates: start: 202105
  5. HONEY [Concomitant]
     Active Substance: HONEY
     Indication: Stoma site reaction
     Route: 061
     Dates: start: 2019
  6. VITAMINS [Concomitant]
     Active Substance: VITAMINS
     Indication: Supplementation therapy
     Route: 048
     Dates: start: 2013
  7. VITAMINS [Concomitant]
     Active Substance: VITAMINS
     Indication: Supplementation therapy
     Route: 048
     Dates: start: 20211218, end: 20211219
  8. ZYRTEC [Concomitant]
     Active Substance: CETIRIZINE HYDROCHLORIDE
     Indication: Premedication
     Route: 048
     Dates: start: 20200923
  9. FLAGYL [Concomitant]
     Active Substance: METRONIDAZOLE\METRONIDAZOLE HYDROCHLORIDE
     Indication: Crohn^s disease
     Route: 048
     Dates: start: 201309, end: 201403
  10. FLAGYL [Concomitant]
     Active Substance: METRONIDAZOLE\METRONIDAZOLE HYDROCHLORIDE
     Indication: Crohn^s disease
     Dosage: IN STOMA SITE
     Route: 065
     Dates: start: 201911
  11. FLAGYL [Concomitant]
     Active Substance: METRONIDAZOLE\METRONIDAZOLE HYDROCHLORIDE
     Indication: Crohn^s disease
     Route: 048
     Dates: start: 20211025
  12. OMEPRAZOLE [Concomitant]
     Active Substance: OMEPRAZOLE
     Indication: Gastritis
     Route: 048
     Dates: start: 201911
  13. ORGAIN KIDS PROTEIN [Concomitant]
     Indication: Weight abnormal
     Dosage: 2-5 BOXES
     Route: 048
     Dates: start: 2019
  14. PREDNISONE [Concomitant]
     Active Substance: PREDNISONE
     Indication: Crohn^s disease
     Route: 048
     Dates: start: 201307, end: 201308
  15. PREDNISONE [Concomitant]
     Active Substance: PREDNISONE
     Indication: Crohn^s disease
     Route: 042
     Dates: start: 201308, end: 201308
  16. PREDNISONE [Concomitant]
     Active Substance: PREDNISONE
     Indication: Crohn^s disease
     Dosage: AS REQUIRED
     Route: 048
     Dates: start: 20200923
  17. USTEKINUMAB [Concomitant]
     Active Substance: USTEKINUMAB
     Indication: Crohn^s disease
     Route: 058
     Dates: start: 20201202
  18. KATE FARMS PEPTIDE [Concomitant]
     Indication: Nutritional supplementation
     Dosage: 2 CARTONS
     Route: 048
     Dates: start: 202105

REACTIONS (1)
  - Enterocutaneous fistula [Recovered/Resolved]

NARRATIVE: CASE EVENT DATE: 20211217
